FAERS Safety Report 10231663 (Version 1)
Quarter: 2014Q2

REPORT INFORMATION
  Report Type: Spontaneous
  Country: MY (occurrence: MY)
  Receive Date: 20140611
  Receipt Date: 20140611
  Transmission Date: 20141212
  Serious: Yes (Hospitalization)
  Sender: FDA-Public Use
  Company Number: PHHY2014MY068166

PATIENT
  Age: 35 Year
  Sex: Female

DRUGS (2)
  1. CEFUROXIME [Suspect]
     Indication: PELVIC INFLAMMATORY DISEASE
     Dosage: 750 MG, TID
  2. METRONIDAZOLE [Suspect]
     Indication: PELVIC INFLAMMATORY DISEASE
     Dosage: 500 MG, TID

REACTIONS (12)
  - Psychotic disorder [Recovered/Resolved]
  - Hallucination, auditory [Recovered/Resolved]
  - Screaming [Recovered/Resolved]
  - Irritability [Recovered/Resolved]
  - Anger [Recovered/Resolved]
  - Crying [Recovered/Resolved]
  - Depressed mood [Recovered/Resolved]
  - Feeling guilty [Recovered/Resolved]
  - Insomnia [Recovered/Resolved]
  - Delusion [Recovered/Resolved]
  - Abnormal behaviour [Recovered/Resolved]
  - Decreased appetite [Unknown]
